FAERS Safety Report 7415404-2 (Version None)
Quarter: 2011Q2

REPORT INFORMATION
  Report Type: 
  Country: None (occurrence: None)
  Receive Date: 20110414
  Receipt Date: 20110406
  Transmission Date: 20111010
  Serious: Yes (Other)
  Sender: FDA-Public Use
  Company Number: B0712651A

PATIENT
  Sex: Female

DRUGS (1)
  1. ARYTHMOL [Suspect]
     Route: 065
     Dates: start: 20100601

REACTIONS (7)
  - LOCALISED OEDEMA [None]
  - DYSPNOEA [None]
  - OEDEMA PERIPHERAL [None]
  - DYSPHAGIA [None]
  - LOCAL SWELLING [None]
  - FACE OEDEMA [None]
  - GENERALISED OEDEMA [None]
